FAERS Safety Report 5524730-3 (Version None)
Quarter: 2007Q4

REPORT INFORMATION
  Report Type: 
  Country: None (occurrence: None)
  Receive Date: 20071123
  Receipt Date: 20071121
  Transmission Date: 20080405
  Serious: Yes (Life-Threatening, Hospitalization)
  Sender: FDA-Public Use
  Company Number: PHBS2007JP16973

PATIENT
  Age: 58 Year
  Sex: Male
  Weight: 72 kg

DRUGS (20)
  1. TEGRETOL [Suspect]
     Indication: ANXIETY DISORDER
     Dosage: 100 MG, BID
     Route: 048
     Dates: start: 20060106, end: 20070926
  2. NOVAMIN [Concomitant]
     Indication: ANXIETY DISORDER
     Dosage: 3 DF/DAY
     Route: 048
     Dates: start: 20060106, end: 20070926
  3. CONSUN [Concomitant]
     Indication: ANXIETY DISORDER
     Dosage: 2 DF/DAY
     Route: 048
     Dates: start: 20060106, end: 20070926
  4. HIRNAMIN [Concomitant]
     Route: 065
  5. SILECE [Concomitant]
     Indication: ANXIETY DISORDER
     Dosage: 1 DF/DAY
     Route: 048
     Dates: start: 20060106, end: 20070926
  6. PROMETHAZINE [Concomitant]
     Indication: ANXIETY DISORDER
     Dosage: 50 MG/DAY
     Route: 048
     Dates: start: 20060106, end: 20070926
  7. GLYCORAN [Suspect]
     Indication: DIABETES MELLITUS
     Dosage: 750 DF/DAY
     Route: 048
     Dates: start: 20060601
  8. PHENOBARBITAL TAB [Suspect]
     Indication: ANXIETY DISORDER
     Dosage: 30 MG/DAY
     Route: 048
     Dates: start: 20060106, end: 20070926
  9. AMARYL [Suspect]
     Indication: DIABETES MELLITUS
     Dosage: 2 DF/DAY
     Route: 048
     Dates: start: 20051001, end: 20070926
  10. ALSEROXYLON [Concomitant]
  11. DIOVAN [Concomitant]
     Indication: HYPERTENSION
     Dosage: 160 MG/DAY
     Route: 048
     Dates: start: 20051001, end: 20070926
  12. AROTINOLOL HYDROCHLORIDE [Concomitant]
     Indication: HYPERTENSION
     Dosage: 200 MG/DAY
     Route: 048
     Dates: start: 20060201, end: 20070926
  13. TRICHLORMETHIAZIDE [Concomitant]
     Indication: HYPERTENSION
     Dosage: 2 MG/DAY
     Route: 048
     Dates: start: 20061101, end: 20070926
  14. BEZATOL - SLOW RELEASE [Suspect]
     Indication: HYPERLIPIDAEMIA
     Dosage: 400 MG/DAY
     Route: 048
     Dates: start: 20060601
  15. DOXAZOSIN MESYLATE [Concomitant]
     Indication: HYPERTENSION
     Dosage: 4 MG/DAY
     Route: 048
     Dates: start: 20061101, end: 20070926
  16. FAMOTIDINE [Concomitant]
     Indication: GASTRITIS
     Dosage: 40 MG/DAY
     Route: 048
     Dates: start: 20070501, end: 20070926
  17. RESTAMIN [Concomitant]
     Route: 065
  18. VEGETAMIN A [Suspect]
     Indication: ANXIETY DISORDER
     Dosage: 1 DF/DAY
     Route: 048
     Dates: start: 20060106, end: 20070926
  19. ALUSA [Concomitant]
     Indication: GASTRITIS
     Dosage: 3 DF/DAY
     Route: 048
     Dates: start: 20060201, end: 20070926
  20. TOWARAT [Concomitant]
     Indication: HYPERTENSION
     Dosage: 40 MG/DAY
     Route: 048
     Dates: start: 20051001, end: 20070926

REACTIONS (3)
  - HEPATITIS ACUTE [None]
  - JAUNDICE [None]
  - SUICIDE ATTEMPT [None]
